FAERS Safety Report 15713925 (Version 1)
Quarter: 2018Q4

REPORT INFORMATION
  Report Type: Spontaneous
  Country: US (occurrence: US)
  Receive Date: 20181129
  Receipt Date: 20181129
  Transmission Date: 20190205
  Serious: No
  Sender: FDA-Public Use
  Company Number: None

PATIENT

DRUGS (2)
  1. HYPERRAB [Suspect]
     Active Substance: HUMAN RABIES VIRUS IMMUNE GLOBULIN
  2. HYPERRAB [Suspect]
     Active Substance: HUMAN RABIES VIRUS IMMUNE GLOBULIN

REACTIONS (4)
  - Intercepted product dispensing error [None]
  - Packaging design issue [None]
  - Product appearance confusion [None]
  - Product dispensing error [None]
